FAERS Safety Report 8464885-4 (Version None)
Quarter: 2012Q2

REPORT INFORMATION
  Report Type: 
  Country: None (occurrence: None)
  Receive Date: 20120626
  Receipt Date: 20120625
  Transmission Date: 20120825
  Serious: Yes (Death)
  Sender: FDA-Public Use
  Company Number: CH-ELI_LILLY_AND_COMPANY-CH201110005336

PATIENT
  Sex: Female
  Weight: 55 kg

DRUGS (10)
  1. CARVEDILOL [Concomitant]
     Dosage: 12.5 MG, QD
     Route: 048
  2. ALDACTONE [Concomitant]
     Dosage: 6.25 MG, QD
  3. ASPIRIN [Concomitant]
     Dosage: 100 MG, QD
     Route: 048
  4. CARVEDILOL [Concomitant]
     Dosage: 25 MG, QD
     Route: 048
  5. TORSEMIDE [Concomitant]
     Dosage: 10 MG, QD
     Route: 048
  6. EFFIENT [Suspect]
     Dosage: 5 MG, QD
     Route: 048
  7. NITRODERM [Concomitant]
     Route: 062
  8. EFFIENT [Suspect]
     Indication: STENT PLACEMENT
     Dosage: 60 MG, SINGLE
     Dates: start: 20110725
  9. AMIODARONE HCL [Concomitant]
     Dosage: 200 MG, QD
     Route: 048
  10. ENALAPRIL MALEATE [Concomitant]
     Dosage: 10 MG, BID
     Route: 048

REACTIONS (1)
  - SUDDEN DEATH [None]
